FAERS Safety Report 7154145-6 (Version None)
Quarter: 2010Q4

REPORT INFORMATION
  Report Type: 
  Country: None (occurrence: None)
  Receive Date: 20101213
  Receipt Date: 20101209
  Transmission Date: 20110411
  Serious: Yes (Other)
  Sender: FDA-Public Use
  Company Number: ES-PFIZER INC-2010167704

PATIENT
  Age: 75 Year
  Sex: Female

DRUGS (3)
  1. CARDYL [Suspect]
     Dosage: 1 DF, 1X/DAY
     Route: 048
     Dates: start: 20100930, end: 20101001
  2. VENOSMIL [Concomitant]
     Dosage: UNK
     Dates: start: 20080101
  3. ACECLOFENAC/PARACETAMOL [Concomitant]
     Indication: PAIN
     Dosage: UNK
     Dates: start: 20080101

REACTIONS (2)
  - FATIGUE [None]
  - SWOLLEN TONGUE [None]
